FAERS Safety Report 7703113-1 (Version None)
Quarter: 2011Q3

REPORT INFORMATION
  Report Type: 
  Country: None (occurrence: None)
  Receive Date: 20110823
  Receipt Date: 20110812
  Transmission Date: 20111222
  Serious: Yes (Hospitalization)
  Sender: FDA-Public Use
  Company Number: US-EISAI INC-E7389-01342-SPO-US

PATIENT
  Sex: Female
  Weight: 53 kg

DRUGS (12)
  1. MORPHINE [Concomitant]
  2. IV DILAUDID [Concomitant]
  3. DULCOLAX [Concomitant]
     Indication: CONSTIPATION
     Route: 048
     Dates: start: 20110621
  4. COLACE [Concomitant]
  5. CIPROFLOXACIN [Concomitant]
  6. FLAGYL [Concomitant]
     Route: 048
  7. MORPHINE SULFATE [Concomitant]
     Indication: PAIN
     Route: 048
  8. HALAVEN [Suspect]
     Indication: BREAST CANCER
     Route: 041
     Dates: start: 20110719
  9. KADIAN [Concomitant]
     Indication: PAIN
     Route: 048
     Dates: start: 20110601
  10. LACTULOSE [Concomitant]
  11. DIAZEPAM [Concomitant]
  12. COMPAZINE [Concomitant]
     Indication: NAUSEA
     Route: 048
     Dates: start: 20110621

REACTIONS (1)
  - COLITIS [None]
